FAERS Safety Report 15834493 (Version 2)
Quarter: 2019Q1

REPORT INFORMATION
  Report Type: Other
  Country: US (occurrence: US)
  Receive Date: 20190116
  Receipt Date: 20190130
  Transmission Date: 20190417
  Serious: Yes (Hospitalization, Other)
  Sender: FDA-Public Use
  Company Number: US-ACORDA-ACO_156530_2019

PATIENT
  Age: 70 Year
  Sex: Female

DRUGS (1)
  1. AMPYRA [Suspect]
     Active Substance: DALFAMPRIDINE
     Indication: MULTIPLE SCLEROSIS
     Dosage: 10 MILLIGRAM, BID
     Route: 048
     Dates: start: 2017

REACTIONS (14)
  - Road traffic accident [Unknown]
  - Urinary tract infection [Not Recovered/Not Resolved]
  - Myalgia [Recovering/Resolving]
  - Fall [Unknown]
  - Road traffic accident [Unknown]
  - Nerve compression [Unknown]
  - Blood cholesterol increased [Unknown]
  - Fatigue [Unknown]
  - Muscular weakness [Unknown]
  - White blood cell count decreased [Unknown]
  - Intracranial mass [Unknown]
  - Dehydration [Not Recovered/Not Resolved]
  - Transient ischaemic attack [Unknown]
  - Sluggishness [Unknown]

NARRATIVE: CASE EVENT DATE: 2018
